FAERS Safety Report 15894474 (Version 1)
Quarter: 2019Q1

REPORT INFORMATION
  Report Type: Spontaneous
  Country: IN (occurrence: IN)
  Receive Date: 20190131
  Receipt Date: 20190131
  Transmission Date: 20190417
  Serious: Yes (Other)
  Sender: FDA-Public Use
  Company Number: IN-LUPIN LIMITED-2019-00381

PATIENT
  Age: 13 Year
  Sex: Male

DRUGS (8)
  1. AMPHOTERICIN B. [Concomitant]
     Active Substance: AMPHOTERICIN B
     Indication: MUCORMYCOSIS
     Dosage: UNK
     Route: 065
  2. VORICONAZOLE. [Suspect]
     Active Substance: VORICONAZOLE
     Indication: MUCORMYCOSIS
     Dosage: UNK
     Route: 065
  3. CASPOFUNGIN [Concomitant]
     Active Substance: CASPOFUNGIN
     Indication: PYREXIA
  4. CASPOFUNGIN [Concomitant]
     Active Substance: CASPOFUNGIN
     Indication: MUCORMYCOSIS
     Dosage: UNK
     Route: 065
  5. CASPOFUNGIN [Concomitant]
     Active Substance: CASPOFUNGIN
     Indication: CONDITION AGGRAVATED
  6. DEXAMETHASONE. [Concomitant]
     Active Substance: DEXAMETHASONE
     Indication: MUCORMYCOSIS
     Dosage: UNK
     Route: 065
  7. DEXAMETHASONE. [Concomitant]
     Active Substance: DEXAMETHASONE
     Dosage: DOSE TAPERED
     Route: 065
  8. G-CSF [Concomitant]
     Active Substance: GRANULOCYTE COLONY-STIMULATING FACTOR NOS
     Indication: MUCORMYCOSIS
     Dosage: 10 MCG/KG/DAY
     Route: 058

REACTIONS (8)
  - Disorientation [Recovering/Resolving]
  - Restlessness [Recovering/Resolving]
  - Hallucination [Recovering/Resolving]
  - Urinary incontinence [Recovered/Resolved]
  - Aphasia [Recovering/Resolving]
  - Aggression [Recovering/Resolving]
  - Anal incontinence [Recovered/Resolved]
  - Anxiety [Recovering/Resolving]
